FAERS Safety Report 10082340 (Version 1)
Quarter: 2014Q2

REPORT INFORMATION
  Report Type: Spontaneous
  Country: US (occurrence: None)
  Receive Date: 20140414
  Receipt Date: 20140414
  Transmission Date: 20141212
  Serious: Yes (Hospitalization, Disabling)
  Sender: FDA-Public Use
  Company Number: None

PATIENT
  Age: 46 Year
  Sex: Female
  Weight: 49.9 kg

DRUGS (1)
  1. ACCOLATE [Suspect]
     Indication: BREAST RECONSTRUCTION
     Dosage: 2 PILLS
     Route: 048
     Dates: start: 20130719, end: 20130819

REACTIONS (6)
  - Hepatic cyst [None]
  - Influenza like illness [None]
  - Migraine [None]
  - Depression [None]
  - Anxiety [None]
  - Aphonia [None]
